FAERS Safety Report 9199742 (Version 1)
Quarter: 2013Q1

REPORT INFORMATION
  Report Type: Spontaneous
  Country: GB (occurrence: GB)
  Receive Date: 20130329
  Receipt Date: 20130329
  Transmission Date: 20140127
  Serious: Yes (Death)
  Sender: FDA-Public Use
  Company Number: GB-SANOFI-AVENTIS-2012SA081906

PATIENT
  Age: 66 Year
  Sex: Female

DRUGS (5)
  1. ELOXATIN [Suspect]
     Indication: COLON CANCER
     Route: 042
     Dates: start: 20120913, end: 20120913
  2. ELOXATIN [Suspect]
     Indication: COLON CANCER
     Route: 042
     Dates: start: 20121004, end: 20121004
  3. CAPECITABINE [Concomitant]
     Indication: COLON CANCER
     Route: 042
     Dates: start: 20120913, end: 20121004
  4. DEXAMETHASONE [Concomitant]
     Dosage: 8 MG DAILY FOR 3 DAYS
     Route: 048
     Dates: start: 20120913, end: 20121004
  5. DEXAMETHASONE [Concomitant]
     Route: 042
     Dates: start: 20120913, end: 20121004

REACTIONS (6)
  - Nausea [Fatal]
  - Incorrect drug administration duration [Unknown]
  - Vomiting [Fatal]
  - Diarrhoea [Fatal]
  - Disease progression [Fatal]
  - Laryngospasm [Unknown]
